FAERS Safety Report 18296801 (Version 2)
Quarter: 2020Q4

REPORT INFORMATION
  Report Type: Spontaneous
  Country: US (occurrence: US)
  Receive Date: 20200922
  Receipt Date: 20201013
  Transmission Date: 20210113
  Serious: Yes (Hospitalization)
  Sender: FDA-Public Use
  Company Number: US-ALVOGEN-2020-ALVOGEN-113253

PATIENT
  Age: 39 Year
  Sex: Female

DRUGS (2)
  1. GRALISE [Suspect]
     Active Substance: GABAPENTIN
     Indication: COMPLEX REGIONAL PAIN SYNDROME
     Dosage: 1200 MG, QD
     Route: 048
  2. AIMOVIG [Concomitant]
     Active Substance: ERENUMAB-AOOE
     Indication: PRODUCT USED FOR UNKNOWN INDICATION

REACTIONS (4)
  - Product use in unapproved indication [Unknown]
  - Spinal nerve stimulator implantation [Unknown]
  - Drug titration error [Unknown]
  - Product use issue [Unknown]

NARRATIVE: CASE EVENT DATE: 20190827
